FAERS Safety Report 11398068 (Version 1)
Quarter: 2015Q3

REPORT INFORMATION
  Report Type: Spontaneous
  Country: BR (occurrence: BR)
  Receive Date: 20150820
  Receipt Date: 20150820
  Transmission Date: 20151125
  Serious: Yes (Death, Other)
  Sender: FDA-Public Use
  Company Number: BR-AMGEN-BRASP2012019109

PATIENT
  Age: 66 Year
  Sex: Female
  Weight: 54 kg

DRUGS (4)
  1. HYDROCHLOROTHIAZIDE. [Concomitant]
     Active Substance: HYDROCHLOROTHIAZIDE
     Dosage: UNK
  2. FLAVONID [Concomitant]
     Dosage: UNK
  3. ENBREL [Suspect]
     Active Substance: ETANERCEPT
     Indication: ANKYLOSING SPONDYLITIS
     Dosage: 50 MG, WEEKLY
     Route: 058
     Dates: start: 201110
  4. CAPTOPRIL. [Concomitant]
     Active Substance: CAPTOPRIL
     Dosage: UNK

REACTIONS (3)
  - Wrong technique in product usage process [Not Recovered/Not Resolved]
  - Injection site pain [Not Recovered/Not Resolved]
  - Metastatic neoplasm [Fatal]

NARRATIVE: CASE EVENT DATE: 201110
